FAERS Safety Report 7396437-1 (Version None)
Quarter: 2011Q2

REPORT INFORMATION
  Report Type: 
  Country: None (occurrence: None)
  Receive Date: 20110406
  Receipt Date: 20101014
  Transmission Date: 20111010
  Serious: Yes (Hospitalization, Other)
  Sender: FDA-Public Use
  Company Number: US-BAYER-200937151NA

PATIENT
  Sex: Female
  Weight: 97.506 kg

DRUGS (15)
  1. IMITREX [Concomitant]
     Dosage: 100 MG, UNK
     Route: 048
  2. LORATADINE [Concomitant]
     Dosage: 10 MG, UNK
     Route: 048
  3. PHENTERMINE [Concomitant]
     Dosage: 37.5 MG, UNK
     Route: 048
  4. ALPRAZOLAM [Concomitant]
     Dosage: 0.25 MG, UNK
     Route: 048
  5. YASMIN [Suspect]
     Indication: CONTRACEPTION
     Dosage: UNK
     Dates: start: 20050101, end: 20081201
  6. CITALOPRAM HYDROBROMIDE [Concomitant]
     Dosage: 20 MG, UNK
     Route: 048
  7. YAZ [Suspect]
     Indication: CONTRACEPTION
  8. TOPAMAX [Concomitant]
     Dosage: 25 MG, UNK
     Route: 048
  9. ZYRTEC [Concomitant]
     Dosage: 10 MG, UNK
     Route: 048
  10. NADOLOL [Concomitant]
     Dosage: 20 MG, UNK
     Route: 048
  11. YAZ [Suspect]
     Indication: PREMENSTRUAL SYNDROME
     Dosage: UNK
     Route: 048
     Dates: start: 20050101, end: 20081201
  12. SEROQUEL [Concomitant]
     Dosage: 100 MG, UNK
     Route: 048
  13. YAZ [Suspect]
     Indication: ACNE
  14. LEVOTHYROXINE [Concomitant]
     Dosage: VARIOUS
     Route: 048
  15. SINGULAIR [Concomitant]
     Dosage: 10 MG, UNK
     Route: 048

REACTIONS (2)
  - CHOLECYSTECTOMY [None]
  - CHOLECYSTITIS CHRONIC [None]
